FAERS Safety Report 7419619-9 (Version None)
Quarter: 2011Q2

REPORT INFORMATION
  Report Type: 
  Country: None (occurrence: None)
  Receive Date: 20110418
  Receipt Date: 20110408
  Transmission Date: 20111010
  Serious: Yes (Hospitalization, Other)
  Sender: FDA-Public Use
  Company Number: CZ-US-EMD SERONO, INC.-E2B_7052454

PATIENT
  Sex: Female
  Weight: 57 kg

DRUGS (1)
  1. GONAL-F [Suspect]
     Indication: IN VITRO FERTILISATION
     Route: 058
     Dates: start: 20110329, end: 20110405

REACTIONS (1)
  - THROMBOSIS [None]
